FAERS Safety Report 10084593 (Version 1)
Quarter: 2014Q2

REPORT INFORMATION
  Report Type: Report from Study
  Country: AR (occurrence: AR)
  Receive Date: 20140417
  Receipt Date: 20140417
  Transmission Date: 20141212
  Serious: Yes (Death, Other)
  Sender: FDA-Public Use
  Company Number: AR-BRISTOL-MYERS SQUIBB COMPANY-20610424

PATIENT
  Age: 54 Year
  Sex: Male

DRUGS (1)
  1. YERVOY [Suspect]
     Dosage: INT:28-JAN-2014.STR:200MG/40ML
     Dates: start: 20131220

REACTIONS (1)
  - Death [Fatal]
